FAERS Safety Report 21189102 (Version 1)
Quarter: 2022Q3

REPORT INFORMATION
  Report Type: Spontaneous
  Country: GB (occurrence: GB)
  Receive Date: 20220809
  Receipt Date: 20220809
  Transmission Date: 20221027
  Serious: Yes (Life-Threatening, Hospitalization)
  Sender: FDA-Public Use
  Company Number: GB-STRIDES ARCOLAB LIMITED-2022SP010058

PATIENT
  Age: 35 Year
  Sex: Male

DRUGS (1)
  1. DISULFIRAM [Suspect]
     Active Substance: DISULFIRAM
     Indication: Alcoholism
     Dosage: 200 MILLIGRAM; PER DAY
     Route: 065

REACTIONS (1)
  - Methaemoglobinaemia [Recovered/Resolved]
